FAERS Safety Report 7064676-5 (Version None)
Quarter: 2010Q4

REPORT INFORMATION
  Report Type: 
  Country: None (occurrence: None)
  Receive Date: 20101019
  Receipt Date: 20101005
  Transmission Date: 20110411
  Serious: Yes (Hospitalization)
  Sender: FDA-Public Use
  Company Number: 019887

PATIENT
  Sex: Female

DRUGS (2)
  1. CIMZIA [Suspect]
     Dosage: (400 MG ( 2 INJECTIONS OF 200 MG EACH ) SUBCUTANEOUS)
     Route: 058
  2. PIRITON (PIRITON ) [Suspect]

REACTIONS (5)
  - BURNING SENSATION [None]
  - MASS [None]
  - MYALGIA [None]
  - PARAESTHESIA ORAL [None]
  - RASH [None]
